FAERS Safety Report 8228201-5 (Version None)
Quarter: 2012Q1

REPORT INFORMATION
  Report Type: 
  Country: None (occurrence: None)
  Receive Date: 20120322
  Receipt Date: 20120312
  Transmission Date: 20120608
  Serious: No
  Sender: FDA-Public Use
  Company Number: TW-SP-2012-02768

PATIENT
  Sex: Male

DRUGS (2)
  1. PROPOLIS [Concomitant]
  2. IMMUCYST [Suspect]
     Indication: BLADDER CANCER
     Route: 043
     Dates: end: 20120131

REACTIONS (2)
  - ARTHRALGIA [None]
  - MYALGIA [None]
